FAERS Safety Report 5910073-2 (Version None)
Quarter: 2008Q4

REPORT INFORMATION
  Report Type: 
  Country: None (occurrence: None)
  Receive Date: 20081007
  Receipt Date: 20070925
  Transmission Date: 20090506
  Serious: No
  Sender: FDA-Public Use
  Company Number: US-ASTRAZENECA-2007UW20716

PATIENT
  Age: 61 Year
  Sex: Female
  Weight: 86.2 kg

DRUGS (7)
  1. ARIMIDEX [Suspect]
     Indication: BREAST CANCER
     Route: 048
     Dates: start: 20030401
  2. EFFEXOR [Concomitant]
     Indication: DEPRESSION
  3. FOSAMAX [Concomitant]
     Indication: OSTEOPENIA
     Dates: start: 20030401
  4. AMBIEN [Concomitant]
     Indication: INSOMNIA
     Dates: start: 20030101
  5. ADVIL [Concomitant]
     Indication: NECK PAIN
  6. CALCIUM [Concomitant]
     Indication: OSTEOPENIA
  7. VITAMIN D [Concomitant]
     Indication: OSTEOPENIA

REACTIONS (9)
  - ARTHRALGIA [None]
  - BURNING SENSATION [None]
  - DEPRESSION [None]
  - DRY SKIN [None]
  - HAIR GROWTH ABNORMAL [None]
  - LEUKOPENIA [None]
  - LIBIDO DECREASED [None]
  - SPONDYLITIS [None]
  - WEIGHT INCREASED [None]
